FAERS Safety Report 10013034 (Version 2)
Quarter: 2014Q1

REPORT INFORMATION
  Report Type: Spontaneous
  Country: IN (occurrence: IN)
  Receive Date: 20140314
  Receipt Date: 20140325
  Transmission Date: 20141002
  Serious: Yes (Other)
  Sender: FDA-Public Use
  Company Number: IN-009507513-1403IND005852

PATIENT
  Age: 34 Year
  Sex: Male

DRUGS (1)
  1. JANUMET [Suspect]
     Indication: DIABETES MELLITUS
     Dosage: 2 X /DAY
     Route: 048
     Dates: end: 201403

REACTIONS (2)
  - Hepatomegaly [Not Recovered/Not Resolved]
  - Hyperchlorhydria [Not Recovered/Not Resolved]
